FAERS Safety Report 10333894 (Version 1)
Quarter: 2014Q3

REPORT INFORMATION
  Report Type: Spontaneous
  Country: US (occurrence: US)
  Receive Date: 20140723
  Receipt Date: 20140723
  Transmission Date: 20150326
  Serious: No
  Sender: FDA-Public Use
  Company Number: US-BIOGENIDEC-2014BI070722

PATIENT
  Age: 48 Year
  Sex: Female

DRUGS (3)
  1. AVONEX [Suspect]
     Active Substance: INTERFERON BETA-1A
     Indication: MULTIPLE SCLEROSIS
     Route: 030
     Dates: start: 20140311
  2. XANAX [Concomitant]
     Active Substance: ALPRAZOLAM
  3. AVONEX [Suspect]
     Active Substance: INTERFERON BETA-1A
     Indication: MULTIPLE SCLEROSIS
     Route: 030

REACTIONS (16)
  - Headache [Unknown]
  - Feeling drunk [Unknown]
  - Agitation [Unknown]
  - Heart rate increased [Unknown]
  - Feeling hot [Unknown]
  - Muscular weakness [Unknown]
  - Flushing [Unknown]
  - Feeling abnormal [Not Recovered/Not Resolved]
  - Erythema [Not Recovered/Not Resolved]
  - Pain [Unknown]
  - Dizziness [Unknown]
  - Hypertension [Not Recovered/Not Resolved]
  - Gait disturbance [Unknown]
  - Dysarthria [Not Recovered/Not Resolved]
  - Slow speech [Unknown]
  - Aphasia [Not Recovered/Not Resolved]

NARRATIVE: CASE EVENT DATE: 20140708
